FAERS Safety Report 6076715-9 (Version None)
Quarter: 2009Q1

REPORT INFORMATION
  Report Type: 
  Country: None (occurrence: None)
  Receive Date: 20090213
  Receipt Date: 20090204
  Transmission Date: 20090719
  Serious: Yes (Hospitalization)
  Sender: FDA-Public Use
  Company Number: US-BAXTER-2009BH000955

PATIENT
  Age: 5 Month
  Sex: Male

DRUGS (1)
  1. DIANEAL [Suspect]
     Indication: URETHRAL VALVES
     Route: 033
     Dates: start: 20090113

REACTIONS (2)
  - BLOODY PERITONEAL EFFLUENT [None]
  - CATHETER RELATED COMPLICATION [None]
